FAERS Safety Report 20665928 (Version 2)
Quarter: 2024Q1

REPORT INFORMATION
  Report Type: Other
  Country: AU (occurrence: AU)
  Receive Date: 20220403
  Receipt Date: 20240216
  Transmission Date: 20240410
  Serious: No
  Sender: FDA-Public Use
  Company Number: AU-TOLMAR, INC.-21AU032053

PATIENT
  Sex: Male

DRUGS (7)
  1. ELIGARD [Suspect]
     Active Substance: LEUPROLIDE ACETATE
     Indication: Prostate cancer
     Dosage: 22.5 MILLIGRAM, Q 3 MONTH
     Dates: start: 20191202
  2. AMITRIPTYLINE [Concomitant]
     Active Substance: AMITRIPTYLINE
     Indication: Product used for unknown indication
     Dosage: 10 MILLIGRAM, BEDTIME
  3. ASPIRIN [Concomitant]
     Active Substance: ASPIRIN
     Indication: Product used for unknown indication
     Dosage: 100 MILLIGRAM
  4. LIPTOR [ATORVASTATIN] [Concomitant]
     Indication: Product used for unknown indication
     Dosage: 10 MILLIGRAM, QD
  5. NEXIUM [Concomitant]
     Active Substance: ESOMEPRAZOLE MAGNESIUM
     Indication: Product used for unknown indication
     Dosage: 20 MILLIGRAM
  6. OLMESARTAN MEDOXOMIL [Concomitant]
     Active Substance: OLMESARTAN MEDOXOMIL
     Indication: Product used for unknown indication
     Dosage: 40 MILLIGRAM
  7. UNSPECIFIED INGREDIENT [Concomitant]
     Active Substance: UNSPECIFIED INGREDIENT
     Indication: Product used for unknown indication
     Dosage: 50 MILLIGRAM

REACTIONS (2)
  - Vitamin D decreased [Unknown]
  - Hot flush [Not Recovered/Not Resolved]
